FAERS Safety Report 6377512-7 (Version None)
Quarter: 2009Q3

REPORT INFORMATION
  Report Type: 
  Country: None (occurrence: None)
  Receive Date: 20090925
  Receipt Date: 20090914
  Transmission Date: 20100115
  Serious: Yes (Hospitalization)
  Sender: FDA-Public Use
  Company Number: US-PFIZER INC-2009269332

PATIENT
  Sex: Male

DRUGS (1)
  1. PHENYTOIN AND PHENYTOIN SODIUM [Suspect]

REACTIONS (1)
  - DRUG INTOLERANCE [None]
